FAERS Safety Report 12938640 (Version 2)
Quarter: 2018Q1

REPORT INFORMATION
  Report Type: Spontaneous
  Country: US (occurrence: US)
  Receive Date: 20161115
  Receipt Date: 20180119
  Transmission Date: 20180508
  Serious: No
  Sender: FDA-Public Use
  Company Number: US-PFIZER INC-2016522221

PATIENT
  Age: 73 Year
  Sex: Female

DRUGS (6)
  1. SIMVASTATIN. [Suspect]
     Active Substance: SIMVASTATIN
     Dosage: UNK
  2. ZOCOR [Suspect]
     Active Substance: SIMVASTATIN
     Dosage: UNK
  3. PENTAZOCINE [Suspect]
     Active Substance: PENTAZOCINE
     Dosage: UNK
  4. IODINE. [Suspect]
     Active Substance: IODINE
     Dosage: UNK
  5. PENTAZOCINE LACTATE [Suspect]
     Active Substance: PENTAZOCINE LACTATE
  6. ASA [Suspect]
     Active Substance: ASPIRIN
     Dosage: UNK

REACTIONS (1)
  - Drug hypersensitivity [Unknown]
